FAERS Safety Report 11330709 (Version 1)
Quarter: 2015Q3

REPORT INFORMATION
  Report Type: Report from Study
  Country: CO (occurrence: CO)
  Receive Date: 20150803
  Receipt Date: 20150803
  Transmission Date: 20151125
  Serious: Yes (Death)
  Sender: FDA-Public Use
  Company Number: CO-ABBVIE-15K-036-1436282-00

PATIENT
  Age: 57 Year
  Sex: Female
  Weight: 35 kg

DRUGS (1)
  1. HUMIRA [Suspect]
     Active Substance: ADALIMUMAB
     Indication: CROHN^S DISEASE
     Route: 058
     Dates: start: 20150225, end: 20150703

REACTIONS (16)
  - Asthenia [Fatal]
  - Fatigue [Fatal]
  - Somnolence [Fatal]
  - Intestinal fistula [Fatal]
  - Melaena [Fatal]
  - Pneumothorax [Fatal]
  - Food intolerance [Fatal]
  - Blood sodium decreased [Fatal]
  - Weight decreased [Fatal]
  - Respiratory distress [Fatal]
  - Anaemia [Fatal]
  - Blood calcium decreased [Fatal]
  - Respiratory distress [Fatal]
  - Cardio-respiratory arrest [Fatal]
  - Blood potassium decreased [Fatal]
  - Gastrointestinal disorder [Fatal]

NARRATIVE: CASE EVENT DATE: 20150713
